FAERS Safety Report 9225379 (Version 1)
Quarter: 2013Q1

REPORT INFORMATION
  Report Type: Spontaneous
  Country: US (occurrence: None)
  Receive Date: 20120927
  Receipt Date: 20120927
  Transmission Date: 20140127
  Serious: No
  Sender: FDA-Public Use
  Company Number: 2012IP000111

PATIENT
  Age: 63 Year
  Sex: Female

DRUGS (4)
  1. BEPREVE [Suspect]
     Indication: HYPERSENSITIVITY
     Route: 047
     Dates: start: 20120808, end: 20120808
  2. ZYRTEC-D [Concomitant]
  3. SINGULAIR [Concomitant]
  4. ADVAIR [Concomitant]

REACTIONS (3)
  - Rhinorrhoea [None]
  - Asthenia [None]
  - Dyspnoea [None]
